FAERS Safety Report 14567106 (Version 3)
Quarter: 2018Q2

REPORT INFORMATION
  Report Type: Report from Study
  Country: JP (occurrence: JP)
  Receive Date: 20180223
  Receipt Date: 20180626
  Transmission Date: 20180711
  Serious: Yes (Life-Threatening, Hospitalization)
  Sender: FDA-Public Use
  Company Number: JP-ACTELION-A-CH2017-149519

PATIENT
  Age: 50 Year
  Sex: Female

DRUGS (27)
  1. EPOPROSTENOL ACT [Suspect]
     Active Substance: EPOPROSTENOL
     Dosage: 50 NG/KG, PER MIN
     Route: 042
     Dates: start: 20170209
  2. CEFAZOLIN SODIUM. [Concomitant]
     Active Substance: CEFAZOLIN SODIUM
  3. SAMSCA [Concomitant]
     Active Substance: TOLVAPTAN
  4. OPSUMIT [Suspect]
     Active Substance: MACITENTAN
     Indication: PULMONARY ARTERIAL HYPERTENSION
     Dosage: 10 MG, QD
     Route: 048
     Dates: start: 20160728
  5. REVATIO [Concomitant]
     Active Substance: SILDENAFIL CITRATE
  6. SLOW-K [Concomitant]
     Active Substance: POTASSIUM CHLORIDE
  7. EPOPROSTENOL ACT [Suspect]
     Active Substance: EPOPROSTENOL
     Dosage: 60 NG/KG, PER MIN
     Route: 042
     Dates: start: 20170321
  8. EPOPROSTENOL ACT [Suspect]
     Active Substance: EPOPROSTENOL
     Dosage: 70 NG/KG, PER MIN
     Route: 042
     Dates: start: 20170430
  9. ADCIRCA [Concomitant]
     Active Substance: TADALAFIL
  10. ALDACTONE [Concomitant]
     Active Substance: SPIRONOLACTONE
  11. CALONAL [Concomitant]
     Active Substance: ACETAMINOPHEN
  12. VOLTAREN [Concomitant]
     Active Substance: DICLOFENAC SODIUM
  13. EPOPROSTENOL ACT [Suspect]
     Active Substance: EPOPROSTENOL
     Indication: PULMONARY ARTERIAL HYPERTENSION
     Dosage: 40 NG/KG, PER MIN
     Route: 042
     Dates: start: 20151205
  14. MERCAZOLE [Concomitant]
     Active Substance: CARBIMAZOLE
  15. OXYGEN. [Concomitant]
     Active Substance: OXYGEN
  16. ZOLMITRIPTAN OD [Concomitant]
     Active Substance: ZOLMITRIPTAN
  17. FLUITRAN [Concomitant]
     Active Substance: TRICHLORMETHIAZIDE
  18. ZOSYN [Concomitant]
     Active Substance: PIPERACILLIN SODIUM\TAZOBACTAM SODIUM
  19. ZOMIG [Concomitant]
     Active Substance: ZOLMITRIPTAN
  20. TRACLEER [Concomitant]
     Active Substance: BOSENTAN
     Indication: PULMONARY ARTERIAL HYPERTENSION
     Dosage: 62.5 MG, UNK
     Route: 048
  21. TRACLEER [Concomitant]
     Active Substance: BOSENTAN
     Indication: PULMONARY ARTERIAL HYPERTENSION
     Dosage: 62.5 MG, UNK
     Route: 048
  22. THYRADIN [Concomitant]
     Active Substance: LEVOTHYROXINE
  23. MAXALT [Concomitant]
     Active Substance: RIZATRIPTAN BENZOATE
  24. EPOPROSTENOL ACT [Suspect]
     Active Substance: EPOPROSTENOL
     Dosage: 41 NG/KG, PER MIN
     Route: 042
     Dates: start: 20170104
  25. EPOPROSTENOL ACT [Suspect]
     Active Substance: EPOPROSTENOL
     Dosage: 65 NG/KG, PER MIN
     Route: 042
     Dates: start: 20170410
  26. LASIX [Concomitant]
     Active Substance: FUROSEMIDE
  27. CRAVIT [Concomitant]
     Active Substance: LEVOFLOXACIN

REACTIONS (14)
  - Catheter removal [Unknown]
  - Abdominal pain upper [Not Recovered/Not Resolved]
  - Catheter management [Unknown]
  - Feeling hot [Recovered/Resolved]
  - Pulmonary hypertension [Recovered/Resolved]
  - Purulent discharge [Recovered/Resolved]
  - Swelling [Recovered/Resolved]
  - Pneumothorax [Recovered/Resolved]
  - Device related infection [Recovered/Resolved]
  - Tenderness [Recovered/Resolved]
  - Erythema [Recovered/Resolved]
  - Iron deficiency anaemia [Recovered/Resolved]
  - Serratia test positive [Recovered/Resolved]
  - Diarrhoea [Not Recovered/Not Resolved]

NARRATIVE: CASE EVENT DATE: 20151205
